FAERS Safety Report 5445964-2 (Version None)
Quarter: 2007Q3

REPORT INFORMATION
  Report Type: 
  Country: None (occurrence: None)
  Receive Date: 20070904
  Receipt Date: 20070820
  Transmission Date: 20080115
  Serious: Yes (Death)
  Sender: FDA-Public Use
  Company Number: 2007001529

PATIENT
  Age: 61 Year
  Sex: Male

DRUGS (3)
  1. TARCEVA [Suspect]
     Indication: LUNG NEOPLASM MALIGNANT
     Dosage: QD, ORAL
     Route: 048
     Dates: start: 20070611, end: 20070626
  2. LANSOPRAZOLE [Concomitant]
  3. CLINIMIX [Concomitant]

REACTIONS (9)
  - BLOOD CALCIUM INCREASED [None]
  - BLOOD CHLORIDE DECREASED [None]
  - BLOOD CREATININE INCREASED [None]
  - BLOOD OSMOLARITY DECREASED [None]
  - BLOOD POTASSIUM INCREASED [None]
  - BLOOD SODIUM DECREASED [None]
  - COMA [None]
  - DISEASE PROGRESSION [None]
  - PANCREATITIS [None]
